FAERS Safety Report 18158910 (Version 1)
Quarter: 2020Q3

REPORT INFORMATION
  Report Type: Spontaneous
  Country: US (occurrence: US)
  Receive Date: 20200817
  Receipt Date: 20200817
  Transmission Date: 20201103
  Serious: No
  Sender: FDA-Public Use
  Company Number: US-VERTEX PHARMACEUTICALS-2020-014048

PATIENT
  Sex: Female
  Weight: 60 kg

DRUGS (3)
  1. CREON [Concomitant]
     Active Substance: PANCRELIPASE AMYLASE\PANCRELIPASE LIPASE\PANCRELIPASE PROTEASE
  2. TRIKAFTA [Suspect]
     Active Substance: ELEXACAFTOR\IVACAFTOR\TEZACAFTOR
     Indication: CYSTIC FIBROSIS
     Dosage: 2 TABS (100 MG ELEXACAFTOR/ 50 MG TEZACAFTOR/ 75 MG IVACAFTOR) AM AND 1 TAB (150MG IVACAFTOR) PM
     Route: 048
     Dates: start: 20191207
  3. TRIKAFTA [Suspect]
     Active Substance: ELEXACAFTOR\IVACAFTOR\TEZACAFTOR
     Dosage: (100 MG ELEXA/ 50 MG TEZA/ 75 MG IVA, 150MG IVA), EVERY OTHER DAY
     Route: 048

REACTIONS (4)
  - Bedridden [Not Recovered/Not Resolved]
  - Swelling [Not Recovered/Not Resolved]
  - Pleural effusion [Not Recovered/Not Resolved]
  - Liver disorder [Unknown]
